FAERS Safety Report 11647863 (Version 2)
Quarter: 2015Q4

REPORT INFORMATION
  Report Type: Report from Study
  Country: JP (occurrence: JP)
  Receive Date: 20151021
  Receipt Date: 20151130
  Transmission Date: 20160304
  Serious: Yes (Hospitalization)
  Sender: FDA-Public Use
  Company Number: JP-XENOPORT, INC.-2015JP009345

PATIENT
  Age: 42 Year
  Sex: Male
  Weight: 38 kg

DRUGS (4)
  1. LENDORMIN [Concomitant]
     Active Substance: BROTIZOLAM
     Dosage: UNK
  2. REGNITE [Suspect]
     Active Substance: GABAPENTIN ENACARBIL
     Dosage: 600 MG, ONCE DAILY
     Route: 048
     Dates: start: 20140714, end: 20141219
  3. DEPAS [Concomitant]
     Active Substance: ETIZOLAM
     Dosage: PER ORAL NOS
     Route: 048
     Dates: start: 20141201, end: 20150105
  4. REGNITE [Suspect]
     Active Substance: GABAPENTIN ENACARBIL
     Indication: RESTLESS LEGS SYNDROME
     Dosage: 300 MG, ONCE DAILY
     Route: 048
     Dates: start: 20140519, end: 20140713

REACTIONS (1)
  - Enterocolitis [Recovered/Resolved]

NARRATIVE: CASE EVENT DATE: 20141219
